FAERS Safety Report 9006624 (Version 1)
Quarter: 2013Q1

REPORT INFORMATION
  Report Type: Spontaneous
  Country: KP (occurrence: KP)
  Receive Date: 20130110
  Receipt Date: 20130110
  Transmission Date: 20140127
  Serious: Yes (Hospitalization)
  Sender: FDA-Public Use
  Company Number: KP-ROXANE LABORATORIES, INC.-2013-RO-00038RO

PATIENT
  Age: 65 Year
  Sex: Male

DRUGS (6)
  1. CLOPIDOGREL [Suspect]
     Indication: CEREBELLAR INFARCTION
  2. ASPIRIN [Suspect]
     Indication: CEREBELLAR INFARCTION
  3. VALPROATE [Suspect]
     Indication: CEREBELLAR INFARCTION
  4. CEFOPERAZONE [Suspect]
     Indication: PNEUMONIA ASPIRATION
  5. CLINDAMYCIN [Suspect]
     Indication: PNEUMONIA ASPIRATION
  6. TEICOPLANIN [Suspect]
     Indication: PNEUMONIA ASPIRATION

REACTIONS (1)
  - Acquired haemophilia [Unknown]
